FAERS Safety Report 5495588-6 (Version None)
Quarter: 2007Q4

REPORT INFORMATION
  Report Type: 
  Country: None (occurrence: None)
  Receive Date: 20071015
  Receipt Date: 20061107
  Transmission Date: 20080405
  Serious: Yes (Other)
  Sender: FDA-Public Use
  Company Number: S06-USA-04698-01

PATIENT
  Age: 60 Year
  Sex: Male

DRUGS (6)
  1. LEXAPRO [Suspect]
     Dosage: 10 MG QD PO
     Route: 048
     Dates: start: 20060114, end: 20060201
  2. ASPIRIN [Concomitant]
  3. PRINIVIL [Concomitant]
  4. HYDROXYZINE [Concomitant]
  5. FAMOTIDNE [Concomitant]
  6. PREDNISONE [Concomitant]

REACTIONS (6)
  - ASTHENIA [None]
  - DIZZINESS [None]
  - MUSCLE SPASMS [None]
  - NAUSEA [None]
  - PAIN IN EXTREMITY [None]
  - SUICIDAL IDEATION [None]
